FAERS Safety Report 8830834 (Version 3)
Quarter: 2012Q4

REPORT INFORMATION
  Report Type: 
  Country: US (occurrence: US)
  Receive Date: 20121009
  Receipt Date: 20121130
  Transmission Date: 20130627
  Serious: Yes (Other)
  Sender: FDA-Public Use
  Company Number: US-PFIZER INC-2012248750

PATIENT
  Age: 57 Year
  Sex: Female

DRUGS (16)
  1. LYRICA [Suspect]
     Dosage: UNK
     Dates: start: 20100101
  2. ANTIVERT [Suspect]
     Indication: DIZZINESS
     Dosage: 12.5 mg, UNK
     Dates: start: 20110112
  3. ANTIVERT [Suspect]
     Indication: VERTIGO
  4. NEURONTIN [Suspect]
     Dosage: UNK
  5. DICYCLOMINE [Concomitant]
     Dosage: 10 mg, 4x/day
     Dates: start: 20100104
  6. ACYCLOVIR [Concomitant]
     Indication: GENITAL HERPES
     Dosage: 800 mg, 1x/day
     Dates: start: 20120411
  7. AMITRIPTYLINE HYDROCHLORIDE [Concomitant]
     Indication: PAIN
     Dosage: 50 mg, 1x/day
     Dates: start: 20120521
  8. ADAPIN [Concomitant]
     Dosage: 50 mg, 1x/day
     Dates: start: 20091204
  9. METHADONE HYDROCHLORIDE [Concomitant]
     Indication: PAIN
     Dosage: 10 mg, 3x/day
     Dates: start: 20120619
  10. ZYRTEC [Concomitant]
     Indication: ALLERGIC RHINITIS DUE TO POLLEN
     Dosage: 10 mg, 1x/day
     Dates: start: 20090604
  11. BETAMETHASONE DP 0.05% CREAM [Concomitant]
     Indication: CONTACT DERMATITIS
     Dosage: UNK
     Dates: start: 20110809
  12. BETAMETHASONE DP 0.05% CREAM [Concomitant]
     Indication: ECZEMA
  13. MEDROL [Concomitant]
     Indication: CONTACT DERMATITIS
     Dosage: 4 mg, UNK
     Dates: start: 20120629
  14. MEDROL [Concomitant]
     Indication: ECZEMA
  15. FLEXERIL [Concomitant]
     Indication: SPASMS
     Dosage: 10 mg, 2x/day
     Dates: start: 20120627
  16. FLEXERIL [Concomitant]
     Indication: HYPERMOBILITY SYNDROME

REACTIONS (7)
  - Visual impairment [Unknown]
  - Diplopia [Recovered/Resolved]
  - Drug ineffective [Unknown]
  - Headache [Unknown]
  - Movement disorder [Unknown]
  - Dizziness [Recovered/Resolved]
  - Emotional disorder [Unknown]
